FAERS Safety Report 18612748 (Version 1)
Quarter: 2020Q4

REPORT INFORMATION
  Report Type: Spontaneous
  Country: DE (occurrence: DE)
  Receive Date: 20201214
  Receipt Date: 20201214
  Transmission Date: 20210114
  Serious: Yes (Other)
  Sender: FDA-Public Use
  Company Number: DE-009507513-2012DEU005568

PATIENT
  Age: 72 Year
  Sex: Female

DRUGS (1)
  1. PEMBROLIZUMAB. [Suspect]
     Active Substance: PEMBROLIZUMAB
     Indication: SQUAMOUS CELL CARCINOMA
     Dosage: UNK
     Dates: start: 202010

REACTIONS (2)
  - Immune-mediated adverse reaction [Unknown]
  - Skin toxicity [Unknown]

NARRATIVE: CASE EVENT DATE: 2020
